FAERS Safety Report 6339100-8 (Version None)
Quarter: 2009Q3

REPORT INFORMATION
  Report Type: 
  Country: None (occurrence: None)
  Receive Date: 20090903
  Receipt Date: 20090826
  Transmission Date: 20100115
  Serious: Yes (Hospitalization)
  Sender: FDA-Public Use
  Company Number: DE-BRISTOL-MYERS SQUIBB COMPANY-14758965

PATIENT
  Age: 62 Year
  Sex: Male
  Weight: 78 kg

DRUGS (18)
  1. CETUXIMAB [Suspect]
     Indication: NON-SMALL CELL LUNG CANCER
     Dosage: INTERRUPTED ON 24JUN2009
     Route: 042
     Dates: start: 20090506
  2. CARBOPLATIN [Suspect]
     Indication: NON-SMALL CELL LUNG CANCER
     Dosage: INTERRUPTED ON 24JUN2009
     Route: 042
     Dates: start: 20090506
  3. GEMCITABINE [Suspect]
     Indication: NON-SMALL CELL LUNG CANCER
     Dosage: INTERRUPTED ON 24JUN2009
     Route: 042
     Dates: start: 20090506
  4. MARCUMAR [Concomitant]
     Indication: SURGERY
     Dates: start: 19890101
  5. PARACODIN BITARTRATE TAB [Concomitant]
     Indication: COUGH
     Dates: start: 20090430, end: 20090617
  6. ACETYLCYSTEINE [Concomitant]
     Indication: COUGH
     Dosage: ACC 600
     Dates: start: 20090430
  7. CLINDAMYCIN [Concomitant]
     Indication: RASH
     Dates: start: 20090514, end: 20090602
  8. NULYTELY [Concomitant]
     Indication: CONSTIPATION
     Dates: start: 20090603
  9. FORTIMEL [Concomitant]
     Indication: MEDICAL DIET
     Dates: start: 20090603
  10. PANTOZOL [Concomitant]
     Dates: start: 20090513
  11. NOVALGIN [Concomitant]
     Indication: BACK PAIN
     Dates: start: 20090617
  12. SODIUM CHLORIDE [Concomitant]
     Indication: FLUID REPLACEMENT
     Dates: start: 20090513, end: 20090601
  13. MCP [Concomitant]
     Indication: PROPHYLAXIS
     Dates: start: 20090513
  14. PREDNISOLONE [Concomitant]
     Indication: PROPHYLAXIS
     Dosage: THERAPY DATES:27MAY09,03JUN09,10JUN09,18JUN09
     Dates: start: 20090513
  15. ACETAMINOPHEN [Concomitant]
     Indication: PROPHYLAXIS
     Dosage: THERAPY DATES:27MAY09,03JUN09,10JUN09,18JUN09
     Dates: start: 20090513
  16. KEVATRIL [Concomitant]
     Indication: PROPHYLAXIS
     Dosage: THERAPY DATES:27MAY09,03JUN09,10JUN09,18JUN09
     Dates: start: 20090513
  17. CLEMASTINE FUMARATE [Concomitant]
     Indication: PROPHYLAXIS
     Dosage: THERAPY DATES:27MAY09,03JUN09,10JUN09,18JUN09
     Dates: start: 20090513
  18. RANITIDINE [Concomitant]
     Indication: PROPHYLAXIS
     Dosage: THERAPY DATES:27MAY09,03JUN09,10JUN09,18JUN09
     Dates: start: 20090520

REACTIONS (1)
  - PYREXIA [None]
